FAERS Safety Report 5699119-7 (Version None)
Quarter: 2008Q2

REPORT INFORMATION
  Report Type: 
  Country: None (occurrence: None)
  Receive Date: 20080407
  Receipt Date: 20080407
  Transmission Date: 20081010
  Serious: Yes (Life-Threatening, Other)
  Sender: FDA-Public Use
  Company Number: None

PATIENT
  Age: 26 Year
  Sex: Female
  Weight: 52.1637 kg

DRUGS (1)
  1. PROAIR HFA [Suspect]
     Indication: ASTHMA
     Dosage: 90 MCG UP TO 15 TIMES/DAY INHAL
     Route: 055
     Dates: start: 20080104, end: 20080406

REACTIONS (5)
  - ASTHMA [None]
  - DIZZINESS [None]
  - DRUG EFFECT DECREASED [None]
  - DYSGEUSIA [None]
  - PHARMACEUTICAL PRODUCT COMPLAINT [None]
